FAERS Safety Report 9010107 (Version 1)
Quarter: 2013Q1

REPORT INFORMATION
  Report Type: Spontaneous
  Country: US (occurrence: US)
  Receive Date: 20130110
  Receipt Date: 20130110
  Transmission Date: 20140127
  Serious: Yes (Other)
  Sender: FDA-Public Use
  Company Number: US-009507513-1301USA001557

PATIENT
  Age: 7 Year
  Sex: Male

DRUGS (8)
  1. SINGULAIR [Suspect]
     Indication: PROPHYLAXIS
     Dosage: 4 MG, UNKNOWN
  2. RHINOCORT [Suspect]
     Dosage: 32 MCG
     Route: 045
  3. ALBUTEROL (+) SALBUTAMOL [Suspect]
     Dosage: 0.83 MG, UNKNOWN
     Route: 045
  4. FLOVENT [Suspect]
     Dosage: 88MCG (44 MCG, 2 IN 1 D), INHALATION
  5. ZITHROMAX [Suspect]
     Dosage: 200 MG, UNKNOWN
  6. ZYRTEC [Suspect]
     Route: 048
  7. PATANOL [Concomitant]
     Indication: ILL-DEFINED DISORDER
  8. AMOXICILLIN (+) CLAVULANATE POTASSIUM [Concomitant]
     Indication: MULTIPLE ALLERGIES

REACTIONS (12)
  - Stress [Unknown]
  - Rhinorrhoea [Unknown]
  - Personality change [Unknown]
  - Performance status decreased [Unknown]
  - Lacrimation increased [Unknown]
  - Irritability [Unknown]
  - Frustration [Unknown]
  - Drug interaction [Unknown]
  - Disturbance in attention [Unknown]
  - Choking [Unknown]
  - Anxiety [Unknown]
  - Aggression [Unknown]
